FAERS Safety Report 6704750-3 (Version None)
Quarter: 2010Q2

REPORT INFORMATION
  Report Type: 
  Country: None (occurrence: None)
  Receive Date: 20100430
  Receipt Date: 20090728
  Transmission Date: 20101027
  Serious: No
  Sender: FDA-Public Use
  Company Number: US-BAUSCH-2009BL003829

PATIENT
  Sex: Female

DRUGS (10)
  1. ALREX [Suspect]
     Indication: DRY EYE
     Route: 047
     Dates: start: 20070101, end: 20090726
  2. ALREX [Suspect]
     Indication: EYE ALLERGY
     Route: 047
     Dates: start: 20070101, end: 20090726
  3. ALREX [Suspect]
     Route: 047
     Dates: start: 20090727
  4. ALREX [Suspect]
     Route: 047
     Dates: start: 20090727
  5. CELLUVISC [Concomitant]
     Indication: DRY EYE
     Route: 047
  6. PATADAY [Concomitant]
     Indication: EYE ALLERGY
     Route: 047
  7. FLONASE [Concomitant]
     Indication: HYPERSENSITIVITY
     Route: 045
  8. ASTELIN [Concomitant]
     Indication: HYPERSENSITIVITY
     Route: 045
  9. ALLEGRA [Concomitant]
     Indication: HYPERSENSITIVITY
     Route: 048
  10. RESTASIS [Concomitant]
     Indication: DRY EYE
     Route: 047

REACTIONS (12)
  - CHEST DISCOMFORT [None]
  - DYSPNOEA [None]
  - EYE IRRITATION [None]
  - FACE OEDEMA [None]
  - GLAUCOMA [None]
  - HEADACHE [None]
  - NAUSEA [None]
  - OCULAR HYPERAEMIA [None]
  - PHOTOPHOBIA [None]
  - SINUS CONGESTION [None]
  - TINNITUS [None]
  - VISION BLURRED [None]
